FAERS Safety Report 5160254-3 (Version None)
Quarter: 2006Q4

REPORT INFORMATION
  Report Type: 
  Country: None (occurrence: None)
  Receive Date: 20061129
  Receipt Date: 20061127
  Transmission Date: 20070319
  Serious: Yes (Hospitalization)
  Sender: FDA-Public Use
  Company Number: US-GLAXOSMITHKLINE-A0628681A

PATIENT
  Sex: Male

DRUGS (7)
  1. COREG [Suspect]
     Indication: HYPERTENSION
     Dosage: 25MG TWICE PER DAY
     Route: 048
  2. XANAX [Concomitant]
  3. METHIMAZOLE [Concomitant]
  4. FINASTERIDE [Concomitant]
  5. WARFARIN SODIUM [Concomitant]
  6. COZAAR [Concomitant]
  7. ASPIRIN [Concomitant]

REACTIONS (4)
  - BLOOD PRESSURE DECREASED [None]
  - DIZZINESS [None]
  - DYSPNOEA [None]
  - INAPPROPRIATE SCHEDULE OF DRUG ADMINISTRATION [None]
